FAERS Safety Report 20154629 (Version 2)
Quarter: 2021Q4

REPORT INFORMATION
  Report Type: Spontaneous
  Country: CA (occurrence: CA)
  Receive Date: 20211207
  Receipt Date: 20211222
  Transmission Date: 20220303
  Serious: Yes (Death, Other)
  Sender: FDA-Public Use
  Company Number: CA-SPECTRUM PHARMACEUTICALS, INC.-12-Z-CA-00141

PATIENT

DRUGS (26)
  1. ZEVALIN [Suspect]
     Active Substance: IBRITUMOMAB TIUXETAN
     Indication: Follicle centre lymphoma diffuse small cell lymphoma
     Dosage: UNK
     Route: 042
  2. ZEVALIN [Suspect]
     Active Substance: IBRITUMOMAB TIUXETAN
     Indication: B-cell lymphoma
  3. BUSULFAN [Suspect]
     Active Substance: BUSULFAN
     Indication: Follicle centre lymphoma, follicular grade I, II, III
     Dosage: 12 MILLIGRAM/KILOGRAM
     Route: 065
  4. BUSULFAN [Suspect]
     Active Substance: BUSULFAN
     Indication: B-cell lymphoma
     Dosage: 12.8 MILLIGRAM/KILOGRAM, ONCE A DAY
     Route: 042
  5. CARBOPLATIN [Suspect]
     Active Substance: CARBOPLATIN
     Indication: Follicle centre lymphoma, follicular grade I, II, III
     Dosage: UNK
     Route: 042
  6. CARBOPLATIN [Suspect]
     Active Substance: CARBOPLATIN
     Indication: B-cell lymphoma
  7. CISPLATIN [Suspect]
     Active Substance: CISPLATIN
     Indication: Follicle centre lymphoma, follicular grade I, II, III
     Dosage: UNK
     Route: 042
  8. CISPLATIN [Suspect]
     Active Substance: CISPLATIN
     Indication: B-cell lymphoma
  9. DOXORUBICIN HYDROCHLORIDE [Suspect]
     Active Substance: DOXORUBICIN HYDROCHLORIDE
     Indication: Follicle centre lymphoma, follicular grade I, II, III
     Dosage: UNK
     Route: 042
  10. DOXORUBICIN HYDROCHLORIDE [Suspect]
     Active Substance: DOXORUBICIN HYDROCHLORIDE
     Indication: B-cell lymphoma
  11. ETOPOSIDE [Suspect]
     Active Substance: ETOPOSIDE
     Indication: Follicle centre lymphoma, follicular grade I, II, III
     Dosage: UNK
     Route: 065
  12. ETOPOSIDE [Suspect]
     Active Substance: ETOPOSIDE
     Indication: B-cell lymphoma
  13. FLUDARA [Suspect]
     Active Substance: FLUDARABINE PHOSPHATE
     Indication: Follicle centre lymphoma, follicular grade I, II, III
     Dosage: 250 MILLIGRAM/SQ. METER, ONCE A DAY
     Route: 065
  14. FLUDARA [Suspect]
     Active Substance: FLUDARABINE PHOSPHATE
     Indication: B-cell lymphoma
  15. IFOSFAMIDE [Suspect]
     Active Substance: IFOSFAMIDE
     Indication: Follicle centre lymphoma, follicular grade I, II, III
     Dosage: 3 GRAM, ONCE A DAY
     Route: 042
  16. IFOSFAMIDE [Suspect]
     Active Substance: IFOSFAMIDE
     Indication: B-cell lymphoma
  17. FILGRASTIM [Suspect]
     Active Substance: FILGRASTIM
     Indication: B-cell lymphoma
     Dosage: UNK
     Route: 042
  18. PREDNISONE [Suspect]
     Active Substance: PREDNISONE
     Indication: Follicle centre lymphoma, follicular grade I, II, III
     Dosage: UNK
     Route: 065
  19. PREDNISONE [Suspect]
     Active Substance: PREDNISONE
     Indication: B-cell lymphoma
  20. CYCLOPHOSPHAMIDE [Suspect]
     Active Substance: CYCLOPHOSPHAMIDE
     Indication: Follicle centre lymphoma, follicular grade I, II, III
     Dosage: 2000 MILLIGRAM, ONCE A DAY
     Route: 042
  21. CYCLOPHOSPHAMIDE [Suspect]
     Active Substance: CYCLOPHOSPHAMIDE
     Indication: B-cell lymphoma
  22. RITUXAN [Suspect]
     Active Substance: RITUXIMAB
     Indication: Follicle centre lymphoma, follicular grade I, II, III
     Dosage: UNK
     Route: 042
  23. RITUXAN [Suspect]
     Active Substance: RITUXIMAB
     Indication: B-cell lymphoma
  24. VINCRISTINE SULFATE [Suspect]
     Active Substance: VINCRISTINE SULFATE
     Indication: Follicle centre lymphoma, follicular grade I, II, III
     Dosage: UNKNOWN
     Route: 065
  25. VINCRISTINE SULFATE [Suspect]
     Active Substance: VINCRISTINE SULFATE
     Indication: B-cell lymphoma
  26. GRANULOCYTE COLONY-STIMULATING FACTOR NOS [Concomitant]
     Active Substance: GRANULOCYTE COLONY-STIMULATING FACTOR NOS
     Indication: Follicle centre lymphoma, follicular grade I, II, III
     Dosage: UNK
     Route: 065

REACTIONS (2)
  - Meningitis tuberculous [Fatal]
  - Sepsis [Fatal]
